FAERS Safety Report 8301606-X (Version None)
Quarter: 2012Q2

REPORT INFORMATION
  Report Type: 
  Country: None (occurrence: None)
  Receive Date: 20120420
  Receipt Date: 20120409
  Transmission Date: 20120825
  Serious: No
  Sender: FDA-Public Use
  Company Number: JP-AMGEN-JPNSP2012020090

PATIENT

DRUGS (2)
  1. RHEUMATREX [Suspect]
     Dosage: UNK
     Route: 048
  2. ENBREL [Suspect]
     Indication: PRODUCT USED FOR UNKNOWN INDICATION
     Dosage: UNK
     Route: 058

REACTIONS (1)
  - ANAEMIA [None]
